FAERS Safety Report 17713163 (Version 3)
Quarter: 2020Q3

REPORT INFORMATION
  Report Type: Report from Study
  Country: US (occurrence: US)
  Receive Date: 20200427
  Receipt Date: 20200721
  Transmission Date: 20201102
  Serious: Yes (Hospitalization)
  Sender: FDA-Public Use
  Company Number: US-EISAI MEDICAL RESEARCH-EC-2020-070787

PATIENT
  Age: 53 Year
  Sex: Female

DRUGS (1)
  1. LENVIMA [Suspect]
     Active Substance: LENVATINIB
     Indication: ENDOMETRIAL CANCER
     Route: 048
     Dates: start: 20200213, end: 2020

REACTIONS (10)
  - Nasopharyngitis [Not Recovered/Not Resolved]
  - Haematemesis [Recovered/Resolved]
  - Hypertension [Recovering/Resolving]
  - Decreased appetite [Recovered/Resolved]
  - Nausea [Not Recovered/Not Resolved]
  - Diarrhoea [Recovering/Resolving]
  - Blood pressure fluctuation [Not Recovered/Not Resolved]
  - Platelet count decreased [Recovered/Resolved]
  - Gallbladder disorder [Recovering/Resolving]
  - Vomiting [Recovering/Resolving]

NARRATIVE: CASE EVENT DATE: 2020
